FAERS Safety Report 7668115-2 (Version None)
Quarter: 2011Q3

REPORT INFORMATION
  Report Type: 
  Country: None (occurrence: None)
  Receive Date: 20110808
  Receipt Date: 20110728
  Transmission Date: 20111222
  Serious: Yes (Other)
  Sender: FDA-Public Use
  Company Number: IE-CUBIST-2011S1000504

PATIENT
  Sex: Male

DRUGS (1)
  1. CUBICIN [Suspect]
     Indication: ENDOCARDITIS
     Dosage: DOSE UNIT:U UNKNOWN
     Route: 065

REACTIONS (2)
  - CARDIAC FAILURE [None]
  - EOSINOPHILIA [None]
